FAERS Safety Report 9729276 (Version 1)
Quarter: 2013Q4

REPORT INFORMATION
  Report Type: Spontaneous
  Country: FR (occurrence: FR)
  Receive Date: 20131204
  Receipt Date: 20131204
  Transmission Date: 20140711
  Serious: Yes (Hospitalization)
  Sender: FDA-Public Use
  Company Number: FR-BRISTOL-MYERS SQUIBB COMPANY-19864289

PATIENT
  Age: 80 Year
  Sex: Female
  Weight: 99 kg

DRUGS (11)
  1. ELIQUIS [Suspect]
     Indication: THROMBOSIS PROPHYLAXIS
     Dosage: ELIQUIS 2.5 MG FILM-COATED TABLET
     Route: 048
     Dates: start: 20130822, end: 20130827
  2. SEROPLEX [Interacting]
     Route: 048
  3. SEROPLEX [Interacting]
     Route: 048
  4. LEVOTHYROX [Concomitant]
     Indication: HYPOTHYROIDISM
     Dosage: 75 MICRO G SCORED TABLET.?1DF= HALF TABLET.
     Route: 048
  5. COKENZEN [Concomitant]
     Indication: HYPERTENSION
     Dosage: 1DF= 1 TABLET.
     Route: 048
  6. OMEPRAZOLE [Concomitant]
     Indication: GASTROOESOPHAGEAL REFLUX DISEASE
     Dosage: 1DF= 1 TABLET.
     Route: 048
  7. SINGULAIR [Concomitant]
     Indication: ASTHMA
     Dosage: 10 MG FILM-COATED TABLET
     Route: 048
  8. SERETIDE [Concomitant]
     Indication: ASTHMA
     Dosage: 1DF= 1 PUFF
     Route: 055
  9. AIROMIR [Concomitant]
     Dosage: AUTOHALER 100 MICROGRAMS/DOSE.
  10. SALBUTAMOL [Concomitant]
     Indication: ASTHMA
     Dosage: SUSPENSION FOR PRESSURIZED INHALATION?1DF= 2 PUFF ON DEMAND
  11. ALPRAZOLAM [Concomitant]
     Dosage: 0.25MG?1DF= 1TABLET.
     Route: 048

REACTIONS (3)
  - Rectal haemorrhage [Recovered/Resolved]
  - Haematemesis [Recovered/Resolved]
  - Drug interaction [Unknown]
